FAERS Safety Report 22748002 (Version 3)
Quarter: 2023Q4

REPORT INFORMATION
  Report Type: Report from Study
  Country: US (occurrence: US)
  Receive Date: 20230725
  Receipt Date: 20231009
  Transmission Date: 20240110
  Serious: Yes (Hospitalization, Other)
  Sender: FDA-Public Use
  Company Number: US-BAYER-2023A098127

PATIENT
  Age: 70 Year
  Sex: Male

DRUGS (19)
  1. NUBEQA [Suspect]
     Active Substance: DAROLUTAMIDE
     Indication: Prostate cancer
     Dosage: 600 MG, BID
  2. NUBEQA [Suspect]
     Active Substance: DAROLUTAMIDE
     Indication: Prostate cancer
     Dosage: 600 MG, BID
  3. ASPIRIN [Concomitant]
     Active Substance: ASPIRIN
     Dosage: 81MG
  4. CLEARLAX [Concomitant]
     Active Substance: POLYETHYLENE GLYCOL 3350
     Dosage: 17GM/SCOOP
  5. DOCUSATE [Concomitant]
     Active Substance: DOCUSATE
     Dosage: 100MG
  6. CYANOCOBALAMIN [Concomitant]
     Active Substance: CYANOCOBALAMIN
     Dosage: 1000MCG/ML
  7. ELIGARD [Concomitant]
     Active Substance: LEUPROLIDE ACETATE
     Dosage: 30MG
  8. FERROUS FUMARATE [Concomitant]
     Active Substance: FERROUS FUMARATE
     Dosage: 324MG
  9. MELOXICAM [Concomitant]
     Active Substance: MELOXICAM
     Dosage: 15MG
  10. MIRALAX [Concomitant]
     Active Substance: POLYETHYLENE GLYCOL 3350
     Dosage: 17GM/SCOOP
  11. MORPHINE SULFATE [Concomitant]
     Active Substance: MORPHINE SULFATE
     Dosage: 15MG
  12. AMLODIPINE BESYLATE [Concomitant]
     Active Substance: AMLODIPINE BESYLATE
     Dosage: 5MG
  13. CHOLESTYRAMINE [Concomitant]
     Active Substance: CHOLESTYRAMINE
     Dosage: 4MG
  14. IBUPROFEN [Concomitant]
     Active Substance: IBUPROFEN
     Dosage: 200MG
  15. LOSARTAN POT HCTZ [Concomitant]
     Dosage: 100-25MG
  16. OMEGA-3 FATTY ACIDS [Concomitant]
     Active Substance: OMEGA-3 FATTY ACIDS
     Dosage: 1000MG
  17. XTANDI [Concomitant]
     Active Substance: ENZALUTAMIDE
     Dosage: UNK
  18. ELIQUIS [Concomitant]
     Active Substance: APIXABAN
     Dosage: 5MG
  19. METOPROLOL SUCCINATE [Concomitant]
     Active Substance: METOPROLOL SUCCINATE
     Dosage: 200MG

REACTIONS (25)
  - Knee arthroplasty [None]
  - Hip fracture [None]
  - Femur fracture [None]
  - Blood pressure decreased [None]
  - Dyspnoea [None]
  - Heart rate increased [None]
  - Prostatic specific antigen increased [None]
  - Metastases to bone [None]
  - Hospitalisation [None]
  - Abdominal discomfort [Not Recovered/Not Resolved]
  - Pain in extremity [None]
  - Palmar-plantar erythrodysaesthesia syndrome [None]
  - Hypoaesthesia [None]
  - Peripheral swelling [None]
  - Constipation [None]
  - Somnolence [None]
  - Weight decreased [None]
  - Diarrhoea [Recovered/Resolved]
  - Constipation [Not Recovered/Not Resolved]
  - Decreased appetite [Not Recovered/Not Resolved]
  - Abdominal pain [Not Recovered/Not Resolved]
  - Gastrointestinal motility disorder [Not Recovered/Not Resolved]
  - Dizziness [Not Recovered/Not Resolved]
  - Hypersomnia [Not Recovered/Not Resolved]
  - Fatigue [Not Recovered/Not Resolved]
